FAERS Safety Report 10713829 (Version 4)
Quarter: 2015Q2

REPORT INFORMATION
  Report Type: Spontaneous
  Country: US (occurrence: US)
  Receive Date: 20150115
  Receipt Date: 20150629
  Transmission Date: 20150821
  Serious: Yes (Hospitalization)
  Sender: FDA-Public Use
  Company Number: US-PFIZER INC-2015016770

PATIENT
  Age: 65 Year
  Sex: Female
  Weight: 70 kg

DRUGS (8)
  1. GABAPENTIN. [Concomitant]
     Active Substance: GABAPENTIN
     Indication: NEUROPATHY PERIPHERAL
     Dosage: 600 MG, DAILY
     Dates: end: 20150420
  2. OXYBUTYNIN [Concomitant]
     Active Substance: OXYBUTYNIN
     Dosage: UNK
  3. AMITRIPTYLINE [Concomitant]
     Active Substance: AMITRIPTYLINE
     Dosage: 150 MG, DAILY
     Dates: start: 1989
  4. PREMPRO [Suspect]
     Active Substance: ESTROGENS, CONJUGATED\MEDROXYPROGESTERONE ACETATE
     Indication: MIGRAINE
     Dosage: (ESTROGENS CONJUGATED 0.625 MG/MEDROXYPROGESTERONE ACETATE 2.5 MG), 1X/DAY
     Dates: start: 2005
  5. PREMPRO [Suspect]
     Active Substance: ESTROGENS, CONJUGATED\MEDROXYPROGESTERONE ACETATE
     Indication: MUSCLE SPASMS
  6. LYRICA [Concomitant]
     Active Substance: PREGABALIN
     Dosage: 150 MG, DAILY
     Dates: start: 20150421
  7. PREMPRO [Suspect]
     Active Substance: ESTROGENS, CONJUGATED\MEDROXYPROGESTERONE ACETATE
     Indication: NEUROPATHY PERIPHERAL
  8. NAPROXEN. [Concomitant]
     Active Substance: NAPROXEN
     Indication: ARTHRITIS
     Dosage: 500-1000 MG, DAILY
     Dates: start: 2005

REACTIONS (7)
  - Abdominal discomfort [Recovered/Resolved]
  - Nausea [Recovered/Resolved]
  - Off label use [Unknown]
  - Headache [Recovered/Resolved]
  - Malaise [Recovered/Resolved]
  - Lethargy [Recovered/Resolved]
  - Hot flush [Recovered/Resolved]
